FAERS Safety Report 7715670-X (Version None)
Quarter: 2011Q3

REPORT INFORMATION
  Report Type: 
  Country: None (occurrence: None)
  Receive Date: 20110829
  Receipt Date: 20110822
  Transmission Date: 20111222
  Serious: Yes (Other)
  Sender: FDA-Public Use
  Company Number: JP-PFIZER INC-2011180302

PATIENT
  Age: 47 Year
  Sex: Female
  Weight: 45 kg

DRUGS (2)
  1. ZITHROMAX [Suspect]
     Indication: INFECTION PROPHYLAXIS
     Dosage: UNK
     Route: 048
     Dates: start: 20110802, end: 20110802
  2. LOXOPROFEN SODIUM [Suspect]
     Dosage: UNK

REACTIONS (6)
  - ANAEMIA [None]
  - ALTERED STATE OF CONSCIOUSNESS [None]
  - COLD SWEAT [None]
  - ABDOMINAL PAIN [None]
  - CHILLS [None]
  - DIARRHOEA [None]
